FAERS Safety Report 7907756-1 (Version None)
Quarter: 2011Q4

REPORT INFORMATION
  Report Type: 
  Country: None (occurrence: None)
  Receive Date: 20111110
  Receipt Date: 20111102
  Transmission Date: 20120403
  Serious: Yes (Life-Threatening, Other)
  Sender: FDA-Public Use
  Company Number: JP-ASTRAZENECA-2011SE34850

PATIENT
  Age: 69 Year
  Sex: Male
  Weight: 70 kg

DRUGS (7)
  1. ASPIRIN [Concomitant]
     Indication: ANGINA PECTORIS
     Route: 048
  2. ROCURONIUM BROMIDE [Concomitant]
     Route: 042
     Dates: start: 20110527
  3. ROPIVACAINE HYDROCHLORIDE [Suspect]
     Indication: NERVE BLOCK
     Route: 053
     Dates: start: 20110527
  4. ISOZOL [Concomitant]
     Route: 042
     Dates: start: 20110527
  5. CEFMETAZOLE NA [Concomitant]
     Route: 042
  6. ULTIVA [Concomitant]
     Route: 042
     Dates: start: 20110527
  7. SIGMART [Concomitant]
     Indication: ANGINA PECTORIS
     Route: 048

REACTIONS (6)
  - CORONARY ARTERY STENOSIS [None]
  - RESUSCITATION [None]
  - ARTERIOGRAM CORONARY [None]
  - HYPOTHERMIA [None]
  - ECHOCARDIOGRAM [None]
  - CARDIAC ARREST [None]
